FAERS Safety Report 12621598 (Version 1)
Quarter: 2016Q3

REPORT INFORMATION
  Report Type: Spontaneous
  Country: US (occurrence: None)
  Receive Date: 20160803
  Receipt Date: 20160803
  Transmission Date: 20161109
  Serious: Yes (Hospitalization)
  Sender: FDA-Public Use
  Company Number: None

PATIENT
  Age: 83 Year
  Sex: Male
  Weight: 65 kg

DRUGS (2)
  1. IRON SUCROSE [Suspect]
     Active Substance: IRON SUCROSE
     Indication: ANAEMIA
     Route: 042
     Dates: start: 20150417, end: 20150417
  2. IRON SUCROSE [Suspect]
     Active Substance: IRON SUCROSE
     Indication: PREOPERATIVE CARE
     Route: 042
     Dates: start: 20150417, end: 20150417

REACTIONS (3)
  - Bradycardia [None]
  - Syncope [None]
  - Incorrect drug administration rate [None]

NARRATIVE: CASE EVENT DATE: 20150417
